FAERS Safety Report 9761184 (Version 1)
Quarter: 2013Q4

REPORT INFORMATION
  Report Type: Spontaneous
  Country: US (occurrence: US)
  Receive Date: 20131216
  Receipt Date: 20131216
  Transmission Date: 20140711
  Serious: No
  Sender: FDA-Public Use
  Company Number: US-BIOGENIDEC-2013BI109878

PATIENT
  Age: 65 Year
  Sex: Female

DRUGS (3)
  1. TECFIDERA [Suspect]
     Indication: MULTIPLE SCLEROSIS
     Route: 048
     Dates: start: 20131001, end: 20131007
  2. TECFIDERA [Suspect]
     Indication: MULTIPLE SCLEROSIS
     Route: 048
     Dates: start: 20131008
  3. TECFIDERA [Suspect]
     Indication: MULTIPLE SCLEROSIS
     Route: 048

REACTIONS (6)
  - Cystitis-like symptom [Recovered/Resolved]
  - Dizziness [Unknown]
  - Feeling abnormal [Unknown]
  - Weight increased [Unknown]
  - Underdose [Unknown]
  - Nausea [Unknown]
